FAERS Safety Report 8225538-0 (Version None)
Quarter: 2012Q1

REPORT INFORMATION
  Report Type: 
  Country: None (occurrence: None)
  Receive Date: 20120321
  Receipt Date: 20120314
  Transmission Date: 20120608
  Serious: Yes (Death)
  Sender: FDA-Public Use
  Company Number: GB-JNJFOC-20120306947

PATIENT
  Age: 50 Year
  Sex: Female

DRUGS (8)
  1. NORETHINDRONE [Suspect]
     Indication: CONTRACEPTION
     Route: 048
  2. CLOZAPINE [Suspect]
     Indication: SCHIZOPHRENIA
     Route: 048
     Dates: start: 20040914, end: 20111023
  3. LAMOTRIGINE [Concomitant]
     Indication: PRODUCT USED FOR UNKNOWN INDICATION
     Route: 048
  4. METFORMIN HCL [Concomitant]
     Indication: DIABETES MELLITUS
     Route: 065
  5. AMISULPRIDE [Concomitant]
     Indication: SCHIZOPHRENIA
     Route: 048
  6. RAMIPRIL [Concomitant]
     Indication: HYPERTENSION
     Route: 065
  7. GLICLAZIDE [Concomitant]
     Indication: DIABETES MELLITUS
     Route: 065
  8. PIOGLITAZONE [Concomitant]
     Indication: DIABETES MELLITUS
     Route: 065

REACTIONS (1)
  - DEATH [None]
